FAERS Safety Report 5566241-5 (Version None)
Quarter: 2008Q1

REPORT INFORMATION
  Report Type: 
  Country: None (occurrence: None)
  Receive Date: 20071219
  Receipt Date: 20071212
  Transmission Date: 20080703
  Serious: Yes (Hospitalization, Other)
  Sender: FDA-Public Use
  Company Number: JP-BRISTOL-MYERS SQUIBB COMPANY-14018055

PATIENT
  Age: 50 Year
  Sex: Male

DRUGS (3)
  1. MITOMYCIN [Suspect]
     Indication: HEPATIC CANCER METASTATIC
     Dates: end: 20020901
  2. FLUOROURACIL [Suspect]
     Indication: HEPATIC CANCER METASTATIC
     Dates: end: 20020901
  3. EPIRUBICIN HCL [Suspect]
     Indication: HEPATIC CANCER METASTATIC
     Dates: end: 20020901

REACTIONS (2)
  - CHOLANGITIS SCLEROSING [None]
  - LIVER ABSCESS [None]
